FAERS Safety Report 10597107 (Version 5)
Quarter: 2015Q2

REPORT INFORMATION
  Report Type: Spontaneous
  Country: GB (occurrence: GB)
  Receive Date: 20141121
  Receipt Date: 20150515
  Transmission Date: 20150821
  Serious: Yes (Other)
  Sender: FDA-Public Use
  Company Number: GB-ROCHE-1471519

PATIENT
  Sex: Female

DRUGS (1)
  1. HERCEPTIN [Suspect]
     Active Substance: TRASTUZUMAB
     Indication: PRODUCT USED FOR UNKNOWN INDICATION
     Dosage: CYCLE 10/17
     Route: 058

REACTIONS (12)
  - Arthralgia [Unknown]
  - Headache [Unknown]
  - Joint stiffness [Unknown]
  - Wound [Recovering/Resolving]
  - Impaired healing [Unknown]
  - Hypoaesthesia [Unknown]
  - Pain [Unknown]
  - Alopecia [Unknown]
  - Pain in extremity [Unknown]
  - Swelling [Unknown]
  - Lymphadenectomy [Unknown]
  - Asthenia [Unknown]
